FAERS Safety Report 5508246-6 (Version None)
Quarter: 2007Q4

REPORT INFORMATION
  Report Type: 
  Country: None (occurrence: None)
  Receive Date: 20071106
  Receipt Date: 20070813
  Transmission Date: 20080405
  Serious: No
  Sender: FDA-Public Use
  Company Number: A0664691A

PATIENT
  Age: 11 Month
  Sex: Male
  Weight: 9.1 kg

DRUGS (1)
  1. AMOXIL [Suspect]
     Indication: DRUG USE FOR UNKNOWN INDICATION
     Dosage: 5CC TWICE PER DAY
     Route: 048
     Dates: start: 20070615, end: 20070621

REACTIONS (4)
  - FOLLICULITIS [None]
  - FUNGAL RASH [None]
  - LICHENOID KERATOSIS [None]
  - SCAR [None]
